FAERS Safety Report 8087670-4 (Version None)
Quarter: 2012Q1

REPORT INFORMATION
  Report Type: 
  Country: None (occurrence: None)
  Receive Date: 20120128
  Receipt Date: 20110408
  Transmission Date: 20120608
  Serious: No
  Sender: FDA-Public Use
  Company Number: US-ABBOTT-11P-163-0717988-00

PATIENT
  Sex: Male
  Weight: 68.554 kg

DRUGS (3)
  1. CORTISONE ACETATE [Concomitant]
     Indication: PRODUCT USED FOR UNKNOWN INDICATION
     Dosage: SHOT, OCCASIONALLY
  2. HUMIRA [Suspect]
     Indication: PSORIASIS
     Dates: start: 20100101
  3. UNKNOWN MEDICATIONS [Concomitant]
     Indication: PRODUCT USED FOR UNKNOWN INDICATION
     Route: 061

REACTIONS (2)
  - SINUS CONGESTION [None]
  - SINUS DISORDER [None]
